FAERS Safety Report 9233226 (Version 1)
Quarter: 2013Q2

REPORT INFORMATION
  Report Type: Spontaneous
  Country: US (occurrence: US)
  Receive Date: 20130416
  Receipt Date: 20130416
  Transmission Date: 20140414
  Serious: Yes (Other)
  Sender: FDA-Public Use
  Company Number: US-BANPHARM-20130971

PATIENT
  Age: 63 Year
  Sex: Female
  Weight: 86.17 kg

DRUGS (10)
  1. NAPROXEN SODIUM 220MG [Suspect]
     Indication: PAIN
     Dosage: 2 DF,
     Route: 048
     Dates: start: 20120425, end: 20120425
  2. SYNTHROID [Concomitant]
  3. LEXAPRO [Concomitant]
  4. TRILIPIX [Concomitant]
  5. BUPROPION [Concomitant]
  6. MULTIVITAMIN [Concomitant]
  7. FISH OIL [Concomitant]
  8. CALCIUM [Concomitant]
  9. GLUCOSAMINE [Concomitant]
  10. NAPROXEN SODIUM 220MG [Suspect]
     Indication: PAIN
     Dosage: 2 DF,
     Route: 048
     Dates: start: 20120505, end: 20120505

REACTIONS (6)
  - Pruritus [Recovered/Resolved]
  - Lip swelling [Recovered/Resolved]
  - Local swelling [Recovered/Resolved]
  - Hypoaesthesia oral [Recovered/Resolved]
  - Blister [Recovered/Resolved]
  - Vision blurred [Recovered/Resolved]
